FAERS Safety Report 8406307-5 (Version None)
Quarter: 2012Q2

REPORT INFORMATION
  Report Type: 
  Country: None (occurrence: None)
  Receive Date: 20120604
  Receipt Date: 20120529
  Transmission Date: 20120825
  Serious: Yes (Other)
  Sender: FDA-Public Use
  Company Number: PHHY2012FR046945

PATIENT
  Sex: Female

DRUGS (2)
  1. AVASTIN [Suspect]
  2. ZOMETA [Suspect]

REACTIONS (1)
  - OSTEONECROSIS [None]
